FAERS Safety Report 13801734 (Version 1)
Quarter: 2017Q3

REPORT INFORMATION
  Report Type: Spontaneous
  Country: GB (occurrence: GB)
  Receive Date: 20170727
  Receipt Date: 20170727
  Transmission Date: 20171127
  Serious: Yes (Other)
  Sender: FDA-Public Use
  Company Number: GB-MYLANLABS-2017M1043447

PATIENT

DRUGS (15)
  1. AMOXICILLIN. [Concomitant]
     Active Substance: AMOXICILLIN
  2. PREDNISOLONE. [Concomitant]
     Active Substance: PREDNISOLONE
     Indication: DISSEMINATED BACILLUS CALMETTE-GUERIN INFECTION
     Dates: start: 20170305
  3. PROCHLORPERAZINE. [Concomitant]
     Active Substance: PROCHLORPERAZINE
  4. LEVOFLOXACIN. [Suspect]
     Active Substance: LEVOFLOXACIN
     Indication: DISSEMINATED BACILLUS CALMETTE-GUERIN INFECTION
     Route: 048
     Dates: start: 20170329, end: 20170622
  5. ENOXAPARIN [Concomitant]
     Active Substance: ENOXAPARIN
  6. GENTAMICIN. [Concomitant]
     Active Substance: GENTAMICIN
  7. OMEPRAZOLE. [Concomitant]
     Active Substance: OMEPRAZOLE
  8. ETHAMBUTOL [Concomitant]
     Active Substance: ETHAMBUTOL HYDROCHLORIDE
     Indication: DISSEMINATED BACILLUS CALMETTE-GUERIN INFECTION
     Dates: start: 20170305
  9. CIPROFLOXACIN. [Concomitant]
     Active Substance: CIPROFLOXACIN
     Indication: PYELONEPHRITIS
     Dates: start: 20170313
  10. PARACETAMOL [Concomitant]
     Active Substance: ACETAMINOPHEN
  11. PYRIDOXINE [Concomitant]
     Active Substance: PYRIDOXINE
  12. RIFINAH [Concomitant]
     Active Substance: ISONIAZID\RIFAMPIN
     Indication: DISSEMINATED BACILLUS CALMETTE-GUERIN INFECTION
     Dates: start: 20170305, end: 20170329
  13. CYCLIZINE [Concomitant]
     Active Substance: CYCLIZINE
  14. MUPIROCIN. [Concomitant]
     Active Substance: MUPIROCIN
  15. ONDANSETRON [Concomitant]
     Active Substance: ONDANSETRON

REACTIONS (2)
  - Musculoskeletal stiffness [Unknown]
  - Joint stiffness [Unknown]

NARRATIVE: CASE EVENT DATE: 20170511
